FAERS Safety Report 19837753 (Version 1)
Quarter: 2021Q3

REPORT INFORMATION
  Report Type: Spontaneous
  Country: TR (occurrence: TR)
  Receive Date: 20210914
  Receipt Date: 20210914
  Transmission Date: 20211014
  Serious: Yes (Other)
  Sender: FDA-Public Use
  Company Number: TR-ZHEJIANG YONGTAI PHARMACEUTICAL CO., LTD.-2021PRN00324

PATIENT
  Age: 73 Year
  Sex: Male
  Weight: 78 kg

DRUGS (7)
  1. IVABRADINE [Concomitant]
     Active Substance: IVABRADINE
     Route: 065
  2. DAPTOMYCIN. [Suspect]
     Active Substance: DAPTOMYCIN
     Indication: ENDOCARDITIS
     Dosage: 10 MG/KG, 1X/DAY
     Route: 065
  3. APIXABAN [Concomitant]
     Active Substance: APIXABAN
     Route: 065
  4. ROSUVASTATIN. [Suspect]
     Active Substance: ROSUVASTATIN
     Dosage: 20 MG, 1X/DAY
     Route: 065
  5. METFORMIN [Concomitant]
     Active Substance: METFORMIN HYDROCHLORIDE
     Route: 065
  6. GINKGO BILOBA [Concomitant]
     Active Substance: GINKGO
     Route: 065
  7. TRIMETAZIDINE [Concomitant]
     Active Substance: TRIMETAZIDINE
     Route: 065

REACTIONS (2)
  - Drug interaction [Recovered/Resolved]
  - Myositis [Recovered/Resolved]
